FAERS Safety Report 8778999 (Version 2)
Quarter: 2015Q3

REPORT INFORMATION
  Report Type: Report from Study
  Country: US (occurrence: US)
  Receive Date: 20120912
  Receipt Date: 20150804
  Transmission Date: 20151125
  Serious: Yes (Hospitalization, Other)
  Sender: FDA-Public Use
  Company Number: US-TEVA-357974USA

PATIENT
  Age: 43 Year
  Sex: Female

DRUGS (14)
  1. FAMOTIDINE. [Concomitant]
     Active Substance: FAMOTIDINE
  2. TYLENOL [Concomitant]
     Active Substance: ACETAMINOPHEN
  3. ADVIL [Concomitant]
     Active Substance: IBUPROFEN
  4. LISINOPRIL. [Concomitant]
     Active Substance: LISINOPRIL
  5. AMPYRA [Suspect]
     Active Substance: DALFAMPRIDINE
     Indication: GAIT DISTURBANCE
     Dosage: 20 MILLIGRAM DAILY;
     Route: 048
  6. TECFIDERA [Suspect]
     Active Substance: DIMETHYL FUMARATE
     Indication: MULTIPLE SCLEROSIS
     Dosage: FREQUENCY NOT PROVIDED
     Route: 065
     Dates: start: 201401
  7. MOTRIN [Concomitant]
     Active Substance: IBUPROFEN
  8. VITAMIN D2 [Concomitant]
     Active Substance: ERGOCALCIFEROL
  9. BACLOFEN. [Concomitant]
     Active Substance: BACLOFEN
  10. TECFIDERA [Suspect]
     Active Substance: DIMETHYL FUMARATE
     Dosage: 480 MILLIGRAM DAILY;
     Route: 065
  11. GABAPENTIN. [Concomitant]
     Active Substance: GABAPENTIN
  12. ECOTRIN [Concomitant]
     Active Substance: ASPIRIN
  13. COPAXONE [Suspect]
     Active Substance: GLATIRAMER ACETATE
     Indication: MULTIPLE SCLEROSIS
     Dates: start: 200901, end: 200901
  14. CLONAZEPAM. [Concomitant]
     Active Substance: CLONAZEPAM

REACTIONS (5)
  - Hemiplegia [Unknown]
  - Hemiparesis [Unknown]
  - Multiple sclerosis relapse [Not Recovered/Not Resolved]
  - Physiotherapy [Unknown]
  - Abasia [Recovering/Resolving]

NARRATIVE: CASE EVENT DATE: 200901
